FAERS Safety Report 6366427-6 (Version None)
Quarter: 2009Q3

REPORT INFORMATION
  Report Type: 
  Country: None (occurrence: None)
  Receive Date: 20090921
  Receipt Date: 20090911
  Transmission Date: 20100115
  Serious: Yes (Other)
  Sender: FDA-Public Use
  Company Number: JP-ASTRAZENECA-2009SE07067

PATIENT
  Age: 18896 Day
  Sex: Male
  Weight: 66.5 kg

DRUGS (10)
  1. SEROQUEL [Suspect]
     Indication: SCHIZOPHRENIA
     Route: 048
     Dates: start: 20080101, end: 20090728
  2. RISPERDAL [Suspect]
     Indication: SCHIZOPHRENIA
     Route: 048
  3. OLANZAPINE [Suspect]
     Indication: SCHIZOPHRENIA
     Route: 048
  4. TAMSOLIN [Concomitant]
     Indication: EXTRAPYRAMIDAL DISORDER
  5. RIVOTRIL [Concomitant]
     Indication: SCHIZOPHRENIA
  6. RIVOTRIL [Concomitant]
     Indication: EXTRAPYRAMIDAL DISORDER
  7. MAGMITT [Concomitant]
     Indication: CONSTIPATION
  8. FLUNITRAZEPAM [Concomitant]
     Indication: SCHIZOPHRENIA
  9. PURSENNID [Concomitant]
     Indication: CONSTIPATION
  10. SODIUM PICOSULFATE [Concomitant]
     Indication: CONSTIPATION
     Route: 048

REACTIONS (1)
  - GASTROINTESTINAL HYPOMOTILITY [None]
